FAERS Safety Report 8482700-X (Version None)
Quarter: 2012Q3

REPORT INFORMATION
  Report Type: 
  Country: None (occurrence: None)
  Receive Date: 20120702
  Receipt Date: 20120628
  Transmission Date: 20120928
  Serious: Yes (Hospitalization, Disabling, Other)
  Sender: FDA-Public Use
  Company Number: US-MERCK-0901USA01518

PATIENT
  Age: 78 Year
  Sex: Female
  Weight: 56 kg

DRUGS (8)
  1. INDERAL [Concomitant]
     Route: 065
  2. FOSAMAX [Suspect]
     Route: 048
     Dates: start: 20020101, end: 20060201
  3. FOSAMAX [Suspect]
     Indication: OSTEOPOROSIS
     Route: 048
     Dates: start: 19980101, end: 20020101
  4. FOSAMAX [Suspect]
     Route: 048
     Dates: start: 20020101, end: 20060201
  5. FOSAMAX [Suspect]
     Indication: OSTEOPENIA
     Route: 048
     Dates: start: 19980101, end: 20020101
  6. SYNTHROID [Concomitant]
     Indication: THYROID CANCER
     Route: 065
     Dates: start: 19610101
  7. MYSOLINE [Concomitant]
     Route: 065
  8. NEURONTIN [Concomitant]
     Route: 065

REACTIONS (47)
  - DENTAL CARIES [None]
  - SLEEP DISORDER [None]
  - TOOTH LOSS [None]
  - POLYNEUROPATHY [None]
  - PATELLOFEMORAL PAIN SYNDROME [None]
  - VERTIGO POSITIONAL [None]
  - ATELECTASIS [None]
  - LUNG ADENOCARCINOMA [None]
  - GAIT DISTURBANCE [None]
  - ABSCESS ORAL [None]
  - DYSPNOEA [None]
  - SICK SINUS SYNDROME [None]
  - ATRIAL FIBRILLATION [None]
  - CONSTIPATION [None]
  - SENSORY LOSS [None]
  - DYSGEUSIA [None]
  - CATARACT [None]
  - GINGIVAL INFECTION [None]
  - FALL [None]
  - DEVICE FAILURE [None]
  - RIB FRACTURE [None]
  - SINUS DISORDER [None]
  - MUSCULOSKELETAL PAIN [None]
  - MITRAL VALVE PROLAPSE [None]
  - IMPLANT SITE INFECTION [None]
  - BONE LOSS [None]
  - OSTEONECROSIS OF JAW [None]
  - ESSENTIAL TREMOR [None]
  - JAW DISORDER [None]
  - HYPERSOMNIA [None]
  - OSTEOCHONDRITIS [None]
  - DRUG HYPERSENSITIVITY [None]
  - PULMONARY CALCIFICATION [None]
  - MENISCUS LESION [None]
  - BALANCE DISORDER [None]
  - ADVERSE DRUG REACTION [None]
  - BONE DISORDER [None]
  - UPPER RESPIRATORY TRACT INFECTION [None]
  - SPINAL OSTEOARTHRITIS [None]
  - OSTEOARTHRITIS [None]
  - TIBIA FRACTURE [None]
  - DRUG INTERACTION [None]
  - TREMOR [None]
  - ARTHRITIS [None]
  - TENDONITIS [None]
  - PARAESTHESIA [None]
  - DENTAL ALVEOLAR ANOMALY [None]
